FAERS Safety Report 16624952 (Version 1)
Quarter: 2019Q3

REPORT INFORMATION
  Report Type: Spontaneous
  Country: CA (occurrence: CA)
  Receive Date: 20190724
  Receipt Date: 20190724
  Transmission Date: 20191004
  Serious: Yes (Other)
  Sender: FDA-Public Use
  Company Number: CA-TEVA-2019-CA-1079535

PATIENT
  Age: 69 Year
  Sex: Female

DRUGS (22)
  1. ALLOPURINOL. [Concomitant]
     Active Substance: ALLOPURINOL
  2. ESTRADIOL. [Concomitant]
     Active Substance: ESTRADIOL
  3. VOLIBRIS [Concomitant]
     Active Substance: AMBRISENTAN
  4. VITAMIN K1 [Concomitant]
     Active Substance: PHYTONADIONE
  5. SILDENAFIL CITRATE. [Suspect]
     Active Substance: SILDENAFIL CITRATE
     Indication: PULMONARY HYPERTENSION
     Route: 048
  6. DIOVAN [Concomitant]
     Active Substance: VALSARTAN
  7. ERGOCALCIFEROL. [Concomitant]
     Active Substance: ERGOCALCIFEROL
  8. IRON [Concomitant]
     Active Substance: IRON
  9. SPIRIVA [Concomitant]
     Active Substance: TIOTROPIUM BROMIDE MONOHYDRATE
  10. RABEPRAZOLE [Concomitant]
     Active Substance: RABEPRAZOLE
  11. SENOKOT [Concomitant]
     Active Substance: SENNOSIDES
  12. LIPITOR [Concomitant]
     Active Substance: ATORVASTATIN CALCIUM
  13. ADVAIR HFA [Concomitant]
     Active Substance: FLUTICASONE PROPIONATE\SALMETEROL XINAFOATE
  14. UPTRAVI [Concomitant]
     Active Substance: SELEXIPAG
  15. WARFARIN [Concomitant]
     Active Substance: WARFARIN
  16. WELLBUTRIN [Concomitant]
     Active Substance: BUPROPION HYDROCHLORIDE
  17. ACETAMINOPHEN. [Concomitant]
     Active Substance: ACETAMINOPHEN
  18. FERROUS GLYCINE SULFATE [Concomitant]
     Active Substance: FERROUS GLYCINE SULFATE
  19. LASIX [Concomitant]
     Active Substance: FUROSEMIDE
  20. METOLAZONE. [Concomitant]
     Active Substance: METOLAZONE
  21. SPIRONOLACTONE. [Concomitant]
     Active Substance: SPIRONOLACTONE
  22. CHROMIUM/COPPER/FOLICACID/INOSITOL/MAGNESIUM/MANGANESE/NICOTINAMIDE/PA [Concomitant]

REACTIONS (12)
  - Chest pain [Not Recovered/Not Resolved]
  - Constipation [Not Recovered/Not Resolved]
  - Fatigue [Not Recovered/Not Resolved]
  - Toothache [Not Recovered/Not Resolved]
  - Dyspnoea [Not Recovered/Not Resolved]
  - Pain [Not Recovered/Not Resolved]
  - Oral pain [Not Recovered/Not Resolved]
  - Ascites [Not Recovered/Not Resolved]
  - Gout [Not Recovered/Not Resolved]
  - Peripheral swelling [Not Recovered/Not Resolved]
  - Product use issue [Not Recovered/Not Resolved]
  - Pain in jaw [Not Recovered/Not Resolved]
